FAERS Safety Report 10223276 (Version 1)
Quarter: 2014Q2

REPORT INFORMATION
  Report Type: Spontaneous
  Country: US (occurrence: US)
  Receive Date: 20140609
  Receipt Date: 20140609
  Transmission Date: 20141212
  Serious: Yes (Hospitalization)
  Sender: FDA-Public Use
  Company Number: US-BRISTOL-MYERS SQUIBB COMPANY-20890844

PATIENT
  Age: 66 Year
  Sex: Male

DRUGS (3)
  1. ELIQUIS [Suspect]
     Route: 048
     Dates: start: 2014
  2. ATENOLOL [Concomitant]
  3. ALLOPURINOL [Concomitant]

REACTIONS (1)
  - Cardiac failure congestive [Unknown]
